FAERS Safety Report 4916646-8 (Version None)
Quarter: 2006Q1

REPORT INFORMATION
  Report Type: 
  Country: None (occurrence: None)
  Receive Date: 20060216
  Receipt Date: 20060216
  Transmission Date: 20060701
  Serious: Yes (Other)
  Sender: FDA-Public Use
  Company Number: None

PATIENT
  Age: 61 Year
  Sex: Male
  Weight: 105.7 kg

DRUGS (9)
  1. SIMVASTATIN [Suspect]
  2. FENOFIBRATE (MICRONIZED) [Concomitant]
  3. TERAZOSIN HCL [Concomitant]
  4. CLOPIDOGREL BISULFATE [Concomitant]
  5. METOPROLOL TARTRATE [Concomitant]
  6. OMEPRAZOLE [Concomitant]
  7. RAMIPRIL [Concomitant]
  8. HYPROMELLOSE [Concomitant]
  9. NITROGLYCERIN [Concomitant]

REACTIONS (1)
  - MYALGIA [None]
